FAERS Safety Report 17332418 (Version 1)
Quarter: 2020Q1

REPORT INFORMATION
  Report Type: Report from Study
  Country: None (occurrence: FR)
  Receive Date: 20200127
  Receipt Date: 20200127
  Transmission Date: 20200409
  Serious: Yes (Other)
  Sender: FDA-Public Use
  Company Number: FR-ABBVIE-19K-056-3202057-00

PATIENT
  Sex: Male

DRUGS (1)
  1. DUODOPA [Suspect]
     Active Substance: CARBIDOPA\LEVODOPA
     Indication: PRODUCT USED FOR UNKNOWN INDICATION
     Dosage: START DATE TEXT: WEEK OF 18-NOV-2019
     Route: 050
     Dates: start: 201911

REACTIONS (2)
  - Dyskinesia [Not Recovered/Not Resolved]
  - Stoma obstruction [Unknown]

NARRATIVE: CASE EVENT DATE: 20191211
